FAERS Safety Report 13555751 (Version 1)
Quarter: 2017Q2

REPORT INFORMATION
  Report Type: Spontaneous
  Country: US (occurrence: US)
  Receive Date: 20170517
  Receipt Date: 20170517
  Transmission Date: 20170830
  Serious: Yes (Other)
  Sender: FDA-Public Use
  Company Number: US-ALLERGAN-1719258US

PATIENT
  Sex: Female

DRUGS (4)
  1. XANAX [Concomitant]
     Active Substance: ALPRAZOLAM
     Indication: ANXIETY
     Dosage: 3 MG, QD
     Route: 048
  2. LIOTHYRONINE [Concomitant]
     Active Substance: LIOTHYRONINE
     Indication: HYPOTHYROIDISM
     Dosage: 25 ?G, QD
     Route: 048
  3. CELEXA [Concomitant]
     Active Substance: CITALOPRAM HYDROBROMIDE
     Indication: DEPRESSION
     Dosage: 20 MG, QD
     Route: 048
  4. ARMOUR THYROID [Suspect]
     Active Substance: THYROID, PORCINE
     Indication: HYPOTHYROIDISM
     Dosage: 150 MG, QAM
     Route: 048

REACTIONS (14)
  - Glaucoma [Unknown]
  - Visual acuity reduced [Unknown]
  - Fluid retention [Unknown]
  - Fatigue [Not Recovered/Not Resolved]
  - Weight increased [Unknown]
  - Intraocular pressure increased [Unknown]
  - Alopecia [Not Recovered/Not Resolved]
  - Disturbance in attention [Unknown]
  - Stress [Not Recovered/Not Resolved]
  - Temperature intolerance [Not Recovered/Not Resolved]
  - Blood magnesium decreased [Unknown]
  - Coeliac disease [Unknown]
  - Asthenia [Not Recovered/Not Resolved]
  - Blood zinc decreased [Unknown]

NARRATIVE: CASE EVENT DATE: 2011
